FAERS Safety Report 20951260 (Version 2)
Quarter: 2022Q2

REPORT INFORMATION
  Report Type: Spontaneous
  Country: CH (occurrence: CH)
  Receive Date: 20220613
  Receipt Date: 20220614
  Transmission Date: 20220720
  Serious: Yes (Hospitalization, Other)
  Sender: FDA-Public Use
  Company Number: None

PATIENT
  Age: 76 Year
  Sex: Male

DRUGS (15)
  1. ALDACTONE [Suspect]
     Active Substance: SPIRONOLACTONE
     Indication: Oedema
     Dosage: 25 MG, 1X/DAY, ORAL (0-1-0-0)
     Route: 048
  2. ALDACTONE [Suspect]
     Active Substance: SPIRONOLACTONE
     Indication: Cardiac failure
  3. SERTRALINE HYDROCHLORIDE [Suspect]
     Active Substance: SERTRALINE HYDROCHLORIDE
     Indication: Depression
     Dosage: 50 MG, 1X/DAY, ORAL (1-0-0-0)
     Route: 048
  4. PHENPROCOUMON [Suspect]
     Active Substance: PHENPROCOUMON
     Indication: Angiodysplasia
     Dosage: 3 MG, 1X/DAY, 3MG ORALLY (PO); INR TARGET RANGE 1.8-2
     Route: 048
  5. EUTHYROX [Suspect]
     Active Substance: LEVOTHYROXINE SODIUM
     Indication: Hypothyroidism
     Dosage: 100 UG
     Route: 048
  6. PHYTONADIONE [Concomitant]
     Active Substance: PHYTONADIONE
     Dosage: 10MG/1ML; ORAL (1-0-0-0)
     Route: 048
  7. CARVEDILOL [Concomitant]
     Active Substance: CARVEDILOL
     Dosage: 6.25MG; P.O. (0-1/2-1/2-0)
     Route: 048
  8. TORSEMIDE [Concomitant]
     Active Substance: TORSEMIDE
     Dosage: 200MG; P.O. (1/2-0-0-0)
     Route: 048
  9. METOLAZONE [Concomitant]
     Active Substance: METOLAZONE
     Dosage: 5MG; ORAL (0-1-0-0)
     Route: 048
  10. TAMSULOSIN HYDROCHLORIDE [Concomitant]
     Active Substance: TAMSULOSIN HYDROCHLORIDE
     Dosage: 0.4 MG; ORAL (0-1-0-0)
     Route: 048
  11. KCL HAUSMANN [Concomitant]
     Dosage: 10MMOL; ORAL (1-0-1-0)
     Route: 048
  12. MAGNESIUM DIASPORAL [MAGNESIUM CITRATE] [Concomitant]
     Dosage: 600 MG, 1X/DAY (12.4MMOL); ORAL (2-0-0-0)
     Route: 048
  13. MINERAL OIL [Concomitant]
     Active Substance: MINERAL OIL
     Dosage: 1 DF, 2X/DAY 20-0-20-0
     Route: 048
  14. PANTOPRAZOLE SODIUM [Concomitant]
     Active Substance: PANTOPRAZOLE SODIUM
     Dosage: 40MG; ORAL (0-0-1-0)
     Route: 048
  15. OXAZEPAM [Concomitant]
     Active Substance: OXAZEPAM
     Dosage: 15MG; P.O. (0-0-0-1)
     Route: 048

REACTIONS (6)
  - Gastrointestinal haemorrhage [Not Recovered/Not Resolved]
  - Melaena [Not Recovered/Not Resolved]
  - Fatigue [Not Recovered/Not Resolved]
  - Nausea [Not Recovered/Not Resolved]
  - Dizziness postural [Not Recovered/Not Resolved]
  - Dyspnoea [Not Recovered/Not Resolved]

NARRATIVE: CASE EVENT DATE: 20220101
